FAERS Safety Report 21358234 (Version 1)
Quarter: 2022Q3

REPORT INFORMATION
  Report Type: Report from Study
  Country: FR (occurrence: FR)
  Receive Date: 20220921
  Receipt Date: 20220921
  Transmission Date: 20221027
  Serious: No
  Sender: FDA-Public Use
  Company Number: FR-TAKEDA-2022TUS065751

PATIENT
  Age: 27 Year
  Sex: Male

DRUGS (16)
  1. TEDUGLUTIDE [Suspect]
     Active Substance: TEDUGLUTIDE
     Indication: Short-bowel syndrome
     Dosage: 3.000 MILLIGRAM, QD
     Route: 042
     Dates: start: 20160927, end: 20181221
  2. TEDUGLUTIDE [Suspect]
     Active Substance: TEDUGLUTIDE
     Indication: Short-bowel syndrome
     Dosage: 3.000 MILLIGRAM, QD
     Route: 042
     Dates: start: 20160927, end: 20181221
  3. TEDUGLUTIDE [Suspect]
     Active Substance: TEDUGLUTIDE
     Indication: Short-bowel syndrome
     Dosage: 3.000 MILLIGRAM, QD
     Route: 042
     Dates: start: 20160927, end: 20181221
  4. TEDUGLUTIDE [Suspect]
     Active Substance: TEDUGLUTIDE
     Indication: Short-bowel syndrome
     Dosage: 3.000 MILLIGRAM, QD
     Route: 042
     Dates: start: 20160927, end: 20181221
  5. TEDUGLUTIDE [Suspect]
     Active Substance: TEDUGLUTIDE
     Dosage: 3.200 MILLIGRAM, QD
     Route: 042
     Dates: start: 20181221, end: 2020
  6. TEDUGLUTIDE [Suspect]
     Active Substance: TEDUGLUTIDE
     Dosage: 3.200 MILLIGRAM, QD
     Route: 042
     Dates: start: 20181221, end: 2020
  7. TEDUGLUTIDE [Suspect]
     Active Substance: TEDUGLUTIDE
     Dosage: 3.200 MILLIGRAM, QD
     Route: 042
     Dates: start: 20181221, end: 2020
  8. TEDUGLUTIDE [Suspect]
     Active Substance: TEDUGLUTIDE
     Dosage: 3.200 MILLIGRAM, QD
     Route: 042
     Dates: start: 20181221, end: 2020
  9. TEDUGLUTIDE [Suspect]
     Active Substance: TEDUGLUTIDE
     Dosage: 3.400 MILLIGRAM, QD
     Route: 042
     Dates: start: 2020
  10. TEDUGLUTIDE [Suspect]
     Active Substance: TEDUGLUTIDE
     Dosage: 3.400 MILLIGRAM, QD
     Route: 042
     Dates: start: 2020
  11. TEDUGLUTIDE [Suspect]
     Active Substance: TEDUGLUTIDE
     Dosage: 3.400 MILLIGRAM, QD
     Route: 042
     Dates: start: 2020
  12. TEDUGLUTIDE [Suspect]
     Active Substance: TEDUGLUTIDE
     Dosage: 3.400 MILLIGRAM, QD
     Route: 042
     Dates: start: 2020
  13. IMODIUM [Concomitant]
     Active Substance: LOPERAMIDE HYDROCHLORIDE
     Indication: Short-bowel syndrome
     Dosage: 8.00 MILLIGRAM, QID
     Route: 048
     Dates: start: 20190321
  14. FERINJECT [Concomitant]
     Active Substance: FERRIC CARBOXYMALTOSE
     Indication: Iron deficiency
     Dosage: 1000.00 MILLIGRAM, SINGLE
     Route: 042
     Dates: start: 20180621, end: 20180621
  15. URSODIOL [Concomitant]
     Active Substance: URSODIOL
     Indication: Cholangitis sclerosing
     Dosage: 1000.00 MILLIGRAM, BID
     Route: 048
     Dates: start: 201803
  16. VITAMIN B12 [Concomitant]
     Active Substance: CYANOCOBALAMIN
     Indication: Vitamin supplementation
     Dosage: 1 MILLIGRAM
     Route: 030
     Dates: start: 201803

REACTIONS (2)
  - Gastrointestinal tract adenoma [Recovered/Resolved]
  - Osteoporosis [Not Recovered/Not Resolved]

NARRATIVE: CASE EVENT DATE: 20220407
